FAERS Safety Report 8468905-2 (Version None)
Quarter: 2012Q2

REPORT INFORMATION
  Report Type: 
  Country: None (occurrence: None)
  Receive Date: 20120620
  Receipt Date: 20120609
  Transmission Date: 20120825
  Serious: Yes (Death)
  Sender: FDA-Public Use
  Company Number: 2012AP001801

PATIENT
  Age: 62 Year
  Sex: Female
  Weight: 121 kg

DRUGS (4)
  1. SIMVASTATIN [Concomitant]
  2. GABAPENTIN [Suspect]
     Indication: PRODUCT USED FOR UNKNOWN INDICATION
  3. FLUOXETINE [Concomitant]
  4. CLONAZEPAM [Concomitant]

REACTIONS (10)
  - LIVIDITY [None]
  - UNRESPONSIVE TO STIMULI [None]
  - NEPHROSCLEROSIS [None]
  - RENAL ADENOMA [None]
  - TOXICITY TO VARIOUS AGENTS [None]
  - MUSCLE RIGIDITY [None]
  - COMPLETED SUICIDE [None]
  - CARDIO-RESPIRATORY ARREST [None]
  - INTENTIONAL OVERDOSE [None]
  - GOITRE [None]
